FAERS Safety Report 7228155-4 (Version None)
Quarter: 2011Q1

REPORT INFORMATION
  Report Type: 
  Country: None (occurrence: None)
  Receive Date: 20110114
  Receipt Date: 20110110
  Transmission Date: 20110831
  Serious: Yes (Life-Threatening, Other)
  Sender: FDA-Public Use
  Company Number: US-US-EMD SERONO, INC.-7035896

PATIENT
  Sex: Male

DRUGS (1)
  1. SEROSTIM [Suspect]
     Indication: CACHEXIA
     Dates: end: 19920101

REACTIONS (2)
  - HEPATITIS C [None]
  - HEPATITIS B [None]
